FAERS Safety Report 9127406 (Version 1)
Quarter: 2013Q1

REPORT INFORMATION
  Report Type: Spontaneous
  Country: US (occurrence: US)
  Receive Date: 20130228
  Receipt Date: 20130228
  Transmission Date: 20140127
  Serious: No
  Sender: FDA-Public Use
  Company Number: US-GLAXOSMITHKLINE-A0973844A

PATIENT
  Age: 55 Year
  Sex: Female

DRUGS (5)
  1. LAMICTAL [Suspect]
     Indication: BIPOLAR DISORDER
     Dosage: 100MG PER DAY
     Route: 048
     Dates: start: 20120113, end: 20120216
  2. TRAZODONE [Suspect]
     Dosage: 50MG PER DAY
     Dates: start: 20120113, end: 20120402
  3. XANAX [Concomitant]
  4. KLONOPIN [Concomitant]
  5. SYNTHROID [Concomitant]

REACTIONS (5)
  - Anxiety [Not Recovered/Not Resolved]
  - Vision blurred [Unknown]
  - Ill-defined disorder [Unknown]
  - Impaired driving ability [Unknown]
  - Depression [Unknown]
